FAERS Safety Report 23207898 (Version 1)
Quarter: 2023Q4

REPORT INFORMATION
  Report Type: Spontaneous
  Country: EE (occurrence: EE)
  Receive Date: 20231121
  Receipt Date: 20231121
  Transmission Date: 20240110
  Serious: Yes (Hospitalization)
  Sender: FDA-Public Use
  Company Number: None

PATIENT
  Age: 37 Year
  Sex: Female

DRUGS (4)
  1. CARIPRAZINE [Suspect]
     Active Substance: CARIPRAZINE
     Indication: Illusion
     Route: 048
     Dates: start: 20230913, end: 20230925
  2. DULOXETINE HYDROCHLORIDE [Concomitant]
     Active Substance: DULOXETINE HYDROCHLORIDE
     Indication: Depression
     Dosage: GASTRORESISTENTSED KOVAKAPSLID  30 MG
     Route: 048
  3. PREGABALIN [Concomitant]
     Active Substance: PREGABALIN
     Indication: Anxiety
     Route: 048
  4. TRARETT [Concomitant]
     Indication: Sleep disorder
     Dosage: PROLONGEERITULT VABASTAVAD TABLETID  150 MG
     Route: 048

REACTIONS (1)
  - Confusional state [Recovered/Resolved]

NARRATIVE: CASE EVENT DATE: 20230921
